FAERS Safety Report 16021248 (Version 1)
Quarter: 2019Q1

REPORT INFORMATION
  Report Type: Spontaneous
  Country: US (occurrence: US)
  Receive Date: 20190228
  Receipt Date: 20190228
  Transmission Date: 20190418
  Serious: Yes (Disabling)
  Sender: FDA-Public Use
  Company Number: None

PATIENT
  Age: 38 Year
  Sex: Male
  Weight: 65.7 kg

DRUGS (1)
  1. REMICADE [Suspect]
     Active Substance: INFLIXIMAB
     Indication: COLITIS ULCERATIVE
     Dosage: ?          QUANTITY:6 BOTTLES;OTHER FREQUENCY:6 WEEKS;?
     Route: 042

REACTIONS (3)
  - Joint stiffness [None]
  - Rash pruritic [None]
  - Arthralgia [None]

NARRATIVE: CASE EVENT DATE: 20181113
